FAERS Safety Report 6743166-0 (Version None)
Quarter: 2010Q2

REPORT INFORMATION
  Report Type: 
  Country: None (occurrence: None)
  Receive Date: 20100527
  Receipt Date: 20100520
  Transmission Date: 20101027
  Serious: Yes (Death, Hospitalization)
  Sender: FDA-Public Use
  Company Number: JP-BAYER-200912273BYL

PATIENT
  Age: 75 Year
  Sex: Female

DRUGS (19)
  1. NEXAVAR [Suspect]
     Indication: HEPATIC NEOPLASM MALIGNANT
     Dosage: UNIT DOSE: 200 MG
     Route: 048
     Dates: start: 20091002, end: 20091019
  2. NEXAVAR [Suspect]
     Dosage: UNIT DOSE: 200 MG
     Route: 048
     Dates: start: 20090917, end: 20091002
  3. NEXAVAR [Suspect]
     Dosage: TOTAL DAILY DOSE: 800 MG  UNIT DOSE: 200 MG
     Route: 048
     Dates: start: 20090616, end: 20090706
  4. NEXAVAR [Suspect]
     Dosage: TOTAL DAILY DOSE: 400 MG  UNIT DOSE: 200 MG
     Route: 048
     Dates: start: 20090706
  5. NORVASC [Concomitant]
     Dosage: UNIT DOSE: 5 MG
     Route: 048
  6. URSO 250 [Concomitant]
     Dosage: UNIT DOSE: 100 MG
     Route: 048
     Dates: start: 20060101
  7. GLYCYRON [Concomitant]
     Route: 048
     Dates: start: 20060101
  8. LIVACT [Concomitant]
     Dosage: UNIT DOSE: 4.15 MG
     Route: 048
     Dates: start: 20080105
  9. AMINOLEBAN EN [Concomitant]
     Route: 048
     Dates: start: 20090304
  10. MAGNESIUM OXIDE [Concomitant]
     Route: 048
     Dates: start: 20081003
  11. GASTER D [Concomitant]
     Dosage: UNIT DOSE: 20 MG
     Route: 048
     Dates: start: 20090310
  12. UREPEARL [Concomitant]
     Route: 061
     Dates: start: 20090607
  13. PENTAZOCINE LACTATE [Concomitant]
     Dosage: UNIT DOSE: 25 MG
     Route: 048
     Dates: start: 20091019, end: 20091021
  14. ALDACTONE [Concomitant]
     Dosage: UNIT DOSE: 25 MG
     Route: 048
     Dates: start: 20091026, end: 20091110
  15. LAC B [Concomitant]
     Route: 048
     Dates: start: 20091029, end: 20091110
  16. LOXONIN [Concomitant]
     Route: 048
     Dates: start: 20091026, end: 20091107
  17. OXYCONTIN [Concomitant]
     Route: 048
     Dates: start: 20091107, end: 20091111
  18. MORPHINE HYDROCHLORIDE [Concomitant]
     Route: 042
     Dates: start: 20091118, end: 20091203
  19. RINDERON [Concomitant]
     Route: 042
     Dates: start: 20091116, end: 20091203

REACTIONS (8)
  - BLOOD AMYLASE INCREASED [None]
  - DIARRHOEA [None]
  - DIZZINESS [None]
  - HEPATIC FUNCTION ABNORMAL [None]
  - HEPATIC NEOPLASM MALIGNANT [None]
  - HYPERTENSION [None]
  - PALMAR-PLANTAR ERYTHRODYSAESTHESIA SYNDROME [None]
  - PLATELET COUNT DECREASED [None]
